FAERS Safety Report 6108009-7 (Version None)
Quarter: 2009Q1

REPORT INFORMATION
  Report Type: 
  Country: None (occurrence: None)
  Receive Date: 20090305
  Receipt Date: 20090305
  Transmission Date: 20090719
  Serious: Yes (Life-Threatening)
  Sender: FDA-Public Use
  Company Number: None

PATIENT
  Sex: Male
  Weight: 106 kg

DRUGS (1)
  1. LISINOPRIL [Suspect]
     Indication: HYPERTENSION

REACTIONS (10)
  - ANAPHYLACTIC REACTION [None]
  - ANOXIA [None]
  - DELIRIUM [None]
  - DYSPNOEA [None]
  - ENDOTRACHEAL INTUBATION COMPLICATION [None]
  - ILL-DEFINED DISORDER [None]
  - ODYNOPHAGIA [None]
  - OROPHARYNGEAL PAIN [None]
  - STRIDOR [None]
  - THERAPEUTIC RESPONSE DECREASED [None]
